FAERS Safety Report 8585134-2 (Version None)
Quarter: 2012Q3

REPORT INFORMATION
  Report Type: 
  Country: None (occurrence: None)
  Receive Date: 20120810
  Receipt Date: 20120806
  Transmission Date: 20120928
  Serious: Yes (Hospitalization, Other)
  Sender: FDA-Public Use
  Company Number: PHHY2012FR068644

PATIENT
  Sex: Female

DRUGS (4)
  1. LASIX [Suspect]
     Dosage: 40 MG, DAILY
     Route: 048
     Dates: end: 20100301
  2. SECTRAL [Suspect]
     Dates: end: 20100301
  3. VALSARTAN [Suspect]
     Dosage: 160 MG, DAILY
     Route: 048
     Dates: end: 20100301
  4. DUSPATALIN [Suspect]
     Dosage: 400 MG, DAILY
     Route: 048
     Dates: end: 20100301

REACTIONS (8)
  - FALL [None]
  - SOMNOLENCE [None]
  - PSYCHOMOTOR SKILLS IMPAIRED [None]
  - HYPOTENSION [None]
  - FEAR OF FALLING [None]
  - GENERAL PHYSICAL HEALTH DETERIORATION [None]
  - GAIT DISTURBANCE [None]
  - VISUAL IMPAIRMENT [None]
